FAERS Safety Report 9214225 (Version 1)
Quarter: 2013Q2

REPORT INFORMATION
  Report Type: Spontaneous
  Country: US (occurrence: None)
  Receive Date: 20130404
  Receipt Date: 20130404
  Transmission Date: 20140414
  Serious: No
  Sender: FDA-Public Use
  Company Number: None

PATIENT
  Age: 53 Year
  Sex: Female

DRUGS (1)
  1. METFORMIN [Suspect]
     Dosage: 500MG BID ORAL
     Route: 048
     Dates: start: 20090501, end: 20090520

REACTIONS (2)
  - Diarrhoea [None]
  - Abdominal distension [None]
